FAERS Safety Report 16807172 (Version 1)
Quarter: 2019Q3

REPORT INFORMATION
  Report Type: Spontaneous
  Country: US (occurrence: US)
  Receive Date: 20190913
  Receipt Date: 20190913
  Transmission Date: 20191005
  Serious: No
  Sender: FDA-Public Use
  Company Number: US-TEVA-2019-US-1106309

PATIENT
  Sex: Female

DRUGS (1)
  1. ALENDRONATE SODIUM TABLET [Suspect]
     Active Substance: ALENDRONATE SODIUM
     Dosage: FORM STRENGTH: 70, UNIT WAS NOT REPORTED
     Route: 065
     Dates: start: 2018

REACTIONS (3)
  - Paraesthesia [Unknown]
  - Poor peripheral circulation [Unknown]
  - Product substitution issue [Unknown]
